FAERS Safety Report 19269416 (Version 2)
Quarter: 2021Q3

REPORT INFORMATION
  Report Type: Spontaneous
  Country: JP (occurrence: JP)
  Receive Date: 20210518
  Receipt Date: 20210811
  Transmission Date: 20211014
  Serious: Yes (Life-Threatening, Hospitalization)
  Sender: FDA-Public Use
  Company Number: JP-MYLANLABS-2021M1028263

PATIENT
  Age: 54 Year
  Sex: Female
  Weight: 77.5 kg

DRUGS (4)
  1. AMLODIPINE [Suspect]
     Active Substance: AMLODIPINE BESYLATE
     Indication: HYPERTENSION
     Dosage: 345 MILLIGRAM, PRESCRIBED DOSE WAS 5MG DAILY
     Route: 048
  2. ETIZOLAM [Concomitant]
     Active Substance: ETIZOLAM
     Indication: INTENTIONAL PRODUCT MISUSE
     Route: 048
  3. OLMESARTAN [Suspect]
     Active Substance: OLMESARTAN
     Indication: HYPERTENSION
     Dosage: 340 MILLIGRAM, PRESCRIBED DOSE WAS 20MG DAILY
     Route: 048
  4. BROTIZOLAM [Concomitant]
     Active Substance: BROTIZOLAM
     Indication: INTENTIONAL PRODUCT MISUSE
     Route: 048

REACTIONS (7)
  - Distributive shock [Recovered/Resolved]
  - Hypotension [Recovered/Resolved]
  - Suicide attempt [Unknown]
  - Metabolic acidosis [Recovered/Resolved]
  - Intentional overdose [Unknown]
  - Mental disorder [Recovered/Resolved]
  - Vasoplegia syndrome [Recovered/Resolved]
